FAERS Safety Report 15954242 (Version 2)
Quarter: 2019Q1

REPORT INFORMATION
  Report Type: Spontaneous
  Country: US (occurrence: US)
  Receive Date: 20190212
  Receipt Date: 20190227
  Transmission Date: 20190417
  Serious: No
  Sender: FDA-Public Use
  Company Number: US-PERSON AND COVEY-2062555

PATIENT
  Age: 73 Year
  Sex: Female
  Weight: 59.09 kg

DRUGS (5)
  1. CYMBALTA [Suspect]
     Active Substance: DULOXETINE HYDROCHLORIDE
     Route: 048
  2. FULL TANKS TABLETS [Suspect]
     Active Substance: UNSPECIFIED INGREDIENT
     Route: 048
  3. DRYSOL [Suspect]
     Active Substance: ALUMINUM CHLORIDE
     Indication: HYPERHIDROSIS
     Route: 003
  4. TURMIC [Concomitant]
     Route: 048
  5. VITAMIN D [Concomitant]
     Active Substance: CHOLECALCIFEROL
     Route: 048

REACTIONS (1)
  - Hyperhidrosis [Unknown]
